FAERS Safety Report 15800893 (Version 1)
Quarter: 2019Q1

REPORT INFORMATION
  Report Type: Spontaneous
  Country: US (occurrence: US)
  Receive Date: 20190109
  Receipt Date: 20190109
  Transmission Date: 20190417
  Serious: Yes (Hospitalization)
  Sender: FDA-Public Use
  Company Number: US-ADAAP-201800185

PATIENT
  Age: 59 Year
  Sex: Male

DRUGS (9)
  1. LUTATHERA [Suspect]
     Active Substance: LUTETIUM OXODOTREOTIDE LU-177
     Indication: NEUROENDOCRINE TUMOUR
     Route: 042
     Dates: start: 20181024, end: 20181024
  2. AMINO ACID [Concomitant]
     Active Substance: AMINO ACIDS
     Indication: DRUG TOXICITY PROPHYLAXIS
     Route: 065
     Dates: start: 20181024
  3. LANREOTIDE [Concomitant]
     Active Substance: LANREOTIDE
     Indication: CARCINOID SYNDROME
     Route: 051
  4. FOSAPREPITANT [Concomitant]
     Active Substance: FOSAPREPITANT
     Indication: PROPHYLAXIS OF NAUSEA AND VOMITING
     Route: 042
     Dates: start: 20181024, end: 20181024
  5. LANREOTIDE [Concomitant]
     Active Substance: LANREOTIDE
     Indication: CARCINOID SYNDROME
     Route: 051
     Dates: start: 2016
  6. DIPHENHYDRAMINE. [Concomitant]
     Active Substance: DIPHENHYDRAMINE
     Indication: PROPHYLAXIS OF NAUSEA AND VOMITING
     Route: 048
     Dates: start: 20181024, end: 20181024
  7. FAMOTIDINE. [Concomitant]
     Active Substance: FAMOTIDINE
     Indication: PROPHYLAXIS OF NAUSEA AND VOMITING
     Route: 048
     Dates: start: 20181024, end: 20181024
  8. ACETAMINOPHEN. [Concomitant]
     Active Substance: ACETAMINOPHEN
     Indication: PYREXIA
     Route: 048
     Dates: start: 20181024, end: 20181024
  9. ONDANSETRON [Concomitant]
     Active Substance: ONDANSETRON
     Indication: PROPHYLAXIS OF NAUSEA AND VOMITING
     Route: 048
     Dates: start: 20181024, end: 20181024

REACTIONS (1)
  - Carcinoid crisis [Not Recovered/Not Resolved]

NARRATIVE: CASE EVENT DATE: 20181024
